FAERS Safety Report 8133644-4 (Version None)
Quarter: 2012Q1

REPORT INFORMATION
  Report Type: 
  Country: None (occurrence: None)
  Receive Date: 20120213
  Receipt Date: 20120202
  Transmission Date: 20120608
  Serious: Yes (Disabling)
  Sender: FDA-Public Use
  Company Number: CA-ROCHE-1036694

PATIENT
  Sex: Female
  Weight: 62 kg

DRUGS (3)
  1. AVASTIN [Suspect]
     Indication: COLON CANCER METASTATIC
     Route: 042
     Dates: start: 20110725, end: 20110906
  2. FLUOROURACIL [Suspect]
     Indication: COLON CANCER METASTATIC
     Route: 042
     Dates: start: 20110725, end: 20110906
  3. CAMPTOSAR [Suspect]
     Indication: COLON CANCER METASTATIC
     Route: 042
     Dates: start: 20110725, end: 20110906

REACTIONS (1)
  - PULMONARY TOXICITY [None]
